FAERS Safety Report 8371575-5 (Version None)
Quarter: 2012Q2

REPORT INFORMATION
  Report Type: 
  Country: None (occurrence: None)
  Receive Date: 20120518
  Receipt Date: 20120508
  Transmission Date: 20120825
  Serious: No
  Sender: FDA-Public Use
  Company Number: US-ASTRAZENECA-2011SE56837

PATIENT
  Age: 76 Year
  Sex: Female

DRUGS (2)
  1. ENTOCORT EC [Suspect]
     Route: 048
  2. SULFASALAZINE [Suspect]
     Route: 065

REACTIONS (6)
  - NAUSEA [None]
  - INTENTIONAL DRUG MISUSE [None]
  - MALAISE [None]
  - DIARRHOEA [None]
  - APHAGIA [None]
  - ADVERSE EVENT [None]
